FAERS Safety Report 19910162 (Version 5)
Quarter: 2021Q4

REPORT INFORMATION
  Report Type: Report from Study
  Country: US (occurrence: US)
  Receive Date: 20211003
  Receipt Date: 20211124
  Transmission Date: 20220303
  Serious: Yes (Hospitalization)
  Sender: FDA-Public Use
  Company Number: US-JNJFOC-20210939581

PATIENT
  Age: 66 Year
  Sex: Female
  Weight: 61.8 kg

DRUGS (2)
  1. EPOPROSTENOL SODIUM [Suspect]
     Active Substance: EPOPROSTENOL SODIUM
     Indication: Pulmonary arterial hypertension
     Dosage: 1.5 MG VIAL INTRAVENOUS CONTINUOUS/ 56 NG/KG/MIN?EXPIRY DATE: 30-SEP-2022
     Route: 042
  2. TREPROSTINIL [Suspect]
     Active Substance: TREPROSTINIL
     Indication: Product used for unknown indication
     Route: 042

REACTIONS (10)
  - Device occlusion [Recovered/Resolved]
  - Ascites [Unknown]
  - Presyncope [Unknown]
  - Underdose [Unknown]
  - Hypotension [Unknown]
  - Oedema [Recovering/Resolving]
  - Rash [Recovered/Resolved]
  - Dizziness [Recovering/Resolving]
  - Abdominal pain upper [Recovering/Resolving]
  - Diarrhoea [Recovering/Resolving]

NARRATIVE: CASE EVENT DATE: 20210917
